FAERS Safety Report 7707220-9 (Version None)
Quarter: 2011Q3

REPORT INFORMATION
  Report Type: 
  Country: None (occurrence: None)
  Receive Date: 20110824
  Receipt Date: 20110810
  Transmission Date: 20111222
  Serious: Yes (Other)
  Sender: FDA-Public Use
  Company Number: PHHY2011BR72503

PATIENT
  Sex: Female

DRUGS (5)
  1. OMEPRAZOLE [Concomitant]
     Dosage: 20 MG, UNK
  2. MODURETIC 5-50 [Concomitant]
     Dosage: 25 MG, QD
  3. DIOVAN [Suspect]
     Dosage: 160 MG, BID
  4. FLUOXETINE [Concomitant]
     Dosage: 20 MG, UNK
  5. ALENDRONATE SODIUM [Concomitant]
     Dosage: 70 MG, QW

REACTIONS (6)
  - BREAST NEOPLASM [None]
  - BONE DISORDER [None]
  - PAIN IN EXTREMITY [None]
  - BLOOD GLUCOSE ABNORMAL [None]
  - GAIT DISTURBANCE [None]
  - BLOOD CHOLESTEROL ABNORMAL [None]
